FAERS Safety Report 5073167-2 (Version None)
Quarter: 2006Q3

REPORT INFORMATION
  Report Type: 
  Country: None (occurrence: None)
  Receive Date: 20060803
  Receipt Date: 20060721
  Transmission Date: 20061208
  Serious: Yes (Hospitalization)
  Sender: FDA-Public Use
  Company Number: 2006091543

PATIENT
  Age: 73 Year
  Sex: Male

DRUGS (2)
  1. SUTENT [Suspect]
     Indication: METASTATIC RENAL CELL CARCINOMA
     Dosage: 50 MG (50 MG, INTERVAL  28 DAYS DAILY), ORAL
     Route: 048
     Dates: start: 20060705
  2. METOPROLOL (METOPROLOL) [Concomitant]

REACTIONS (2)
  - LETHARGY [None]
  - PYREXIA [None]
